FAERS Safety Report 23257785 (Version 2)
Quarter: 2023Q4

REPORT INFORMATION
  Report Type: Spontaneous
  Country: JP (occurrence: JP)
  Receive Date: 20231204
  Receipt Date: 20231212
  Transmission Date: 20240110
  Serious: Yes (Hospitalization, Other)
  Sender: FDA-Public Use
  Company Number: JP-MSD-M2023-51038

PATIENT
  Age: 81 Year
  Sex: Male
  Weight: 69.3 kg

DRUGS (3)
  1. SITAGLIPTIN [Suspect]
     Active Substance: SITAGLIPTIN
     Dosage: 50 MILLIGRAM, QD
     Route: 048
  2. EMPAGLIFLOZIN [Suspect]
     Active Substance: EMPAGLIFLOZIN
     Indication: Type 2 diabetes mellitus
     Dosage: 10 MILLIGRAM, QD
     Route: 048
  3. EMPAGLIFLOZIN [Suspect]
     Active Substance: EMPAGLIFLOZIN
     Dosage: UNK UNK, QD
     Route: 048

REACTIONS (6)
  - Altered state of consciousness [Unknown]
  - Decreased appetite [Unknown]
  - Malaise [Unknown]
  - Oedema peripheral [Unknown]
  - Gastric cancer [Unknown]
  - Gait disturbance [Unknown]
